FAERS Safety Report 8094865-2 (Version None)
Quarter: 2012Q1

REPORT INFORMATION
  Report Type: 
  Country: None (occurrence: None)
  Receive Date: 20120129
  Receipt Date: 20120119
  Transmission Date: 20120608
  Serious: Yes (Other)
  Sender: FDA-Public Use
  Company Number: US-AMGEN-USASP2011024784

PATIENT
  Age: 59 Year
  Sex: Female

DRUGS (1)
  1. ENBREL [Suspect]
     Indication: RHEUMATOID ARTHRITIS
     Dosage: 50 MG, QWK
     Dates: start: 20101205

REACTIONS (21)
  - MEMORY IMPAIRMENT [None]
  - MENTAL DISORDER [None]
  - RHEUMATOID ARTHRITIS [None]
  - COGNITIVE DISORDER [None]
  - INJECTION SITE SWELLING [None]
  - INJECTION SITE PAIN [None]
  - INJECTION SITE URTICARIA [None]
  - INSOMNIA [None]
  - EMOTIONAL DISTRESS [None]
  - BALANCE DISORDER [None]
  - MOOD ALTERED [None]
  - INJECTION SITE HAEMORRHAGE [None]
  - DEPRESSION [None]
  - MENTAL IMPAIRMENT [None]
  - INJECTION SITE REACTION [None]
  - DISTURBANCE IN ATTENTION [None]
  - CRYING [None]
  - FIBROMYALGIA [None]
  - INJECTION SITE ERYTHEMA [None]
  - DRUG INEFFECTIVE [None]
  - INJECTION SITE HAEMATOMA [None]
